FAERS Safety Report 14024720 (Version 2)
Quarter: 2017Q4

REPORT INFORMATION
  Report Type: Spontaneous
  Country: US (occurrence: US)
  Receive Date: 20170929
  Receipt Date: 20171012
  Transmission Date: 20180321
  Serious: Yes (Other)
  Sender: FDA-Public Use
  Company Number: US-BRISTOL-MYERS SQUIBB COMPANY-BMS-2017-085137

PATIENT
  Sex: Male
  Weight: 65.76 kg

DRUGS (1)
  1. YERVOY [Suspect]
     Active Substance: IPILIMUMAB
     Indication: MALIGNANT MELANOMA
     Dosage: 840 MG, 200MGX4, 50MGX1
     Route: 065
     Dates: start: 20170413

REACTIONS (2)
  - Adverse event [Unknown]
  - Prescribed overdose [Unknown]
